FAERS Safety Report 8571553-7 (Version None)
Quarter: 2012Q3

REPORT INFORMATION
  Report Type: 
  Country: None (occurrence: None)
  Receive Date: 20120806
  Receipt Date: 20120731
  Transmission Date: 20120928
  Serious: Yes (Hospitalization)
  Sender: FDA-Public Use
  Company Number: PHHY2012BR066926

PATIENT
  Age: 38 Year
  Sex: Female
  Weight: 65 kg

DRUGS (3)
  1. DASATINIB [Suspect]
     Indication: CHRONIC MYELOID LEUKAEMIA
  2. TASIGNA [Suspect]
     Indication: CHRONIC MYELOID LEUKAEMIA
     Dosage: 400 MG, Q12H
  3. IMATINIB MESYLATE [Suspect]
     Indication: CHRONIC MYELOID LEUKAEMIA
     Dosage: 600 MG, DAILY

REACTIONS (3)
  - VOMITING [None]
  - DIARRHOEA [None]
  - HYPERSENSITIVITY [None]
